FAERS Safety Report 6404643-5 (Version None)
Quarter: 2009Q4

REPORT INFORMATION
  Report Type: 
  Country: None (occurrence: None)
  Receive Date: 20091016
  Receipt Date: 20091006
  Transmission Date: 20100525
  Serious: Yes (Death, Life-Threatening, Hospitalization, Other)
  Sender: FDA-Public Use
  Company Number: GB-ELI_LILLY_AND_COMPANY-GB200809003411

PATIENT
  Sex: Male
  Weight: 64 kg

DRUGS (2)
  1. ZYPREXA [Suspect]
  2. FLUPENTIXOL [Concomitant]

REACTIONS (9)
  - AGITATION [None]
  - ASTHENIA [None]
  - CARDIAC ARREST [None]
  - COMA [None]
  - DYSKINESIA [None]
  - DYSTONIA [None]
  - EPILEPSY [None]
  - HYPOAESTHESIA [None]
  - METASTASES TO LIVER [None]
